FAERS Safety Report 7654808-X (Version None)
Quarter: 2011Q3

REPORT INFORMATION
  Report Type: 
  Country: None (occurrence: None)
  Receive Date: 20110728
  Receipt Date: 20110415
  Transmission Date: 20111222
  Serious: Yes (Other)
  Sender: FDA-Public Use
  Company Number: 2011SP017292

PATIENT
  Age: 59 Year
  Sex: Female

DRUGS (8)
  1. SIMVASTATIN [Concomitant]
  2. GARLIC [Concomitant]
  3. ADVIL LIQUI-GELS [Concomitant]
  4. CARBATROL [Concomitant]
  5. INTRON A [Suspect]
     Indication: MALIGNANT MELANOMA STAGE III
     Dosage: 35 MIU;IV ; 30 MIU;IV
     Route: 042
     Dates: start: 20110412, end: 20110413
  6. INTRON A [Suspect]
     Indication: MALIGNANT MELANOMA STAGE III
     Dosage: 35 MIU;IV ; 30 MIU;IV
     Route: 042
     Dates: start: 20110411
  7. COMPAZINE [Concomitant]
  8. FOLIC ACID [Concomitant]

REACTIONS (2)
  - NEUTROPENIA [None]
  - HAIR COLOUR CHANGES [None]
